FAERS Safety Report 8519276-4 (Version None)
Quarter: 2012Q3

REPORT INFORMATION
  Report Type: 
  Country: None (occurrence: None)
  Receive Date: 20120718
  Receipt Date: 20120704
  Transmission Date: 20120928
  Serious: Yes (Hospitalization)
  Sender: FDA-Public Use
  Company Number: JP-ELI_LILLY_AND_COMPANY-JP201207001256

PATIENT
  Age: 86 Year
  Sex: Female

DRUGS (2)
  1. FLUVOXAMINE MALEATE [Concomitant]
     Indication: SCHIZOPHRENIA
  2. ZYPREXA [Suspect]
     Indication: SCHIZOPHRENIA
     Route: 048

REACTIONS (2)
  - DRUG INTERACTION [None]
  - LONG QT SYNDROME [None]
